FAERS Safety Report 8527789 (Version 3)
Quarter: 2014Q3

REPORT INFORMATION
  Report Type: Report from Study
  Country: US (occurrence: US)
  Receive Date: 20120424
  Receipt Date: 20140723
  Transmission Date: 20150326
  Serious: Yes (Hospitalization, Other)
  Sender: FDA-Public Use
  Company Number: US-GLAXOSMITHKLINE-A0882227B

PATIENT
  Age: 49 Year
  Sex: Female
  Weight: 65.8 kg

DRUGS (10)
  1. PERCOCET [Concomitant]
     Active Substance: ACETAMINOPHEN\OXYCODONE HYDROCHLORIDE
     Indication: PAIN
     Route: 048
  2. CARBOPLATIN. [Suspect]
     Active Substance: CARBOPLATIN
     Indication: BREAST CANCER
     Route: 042
     Dates: start: 20100512
  3. RADIOTHERAPY [Concomitant]
     Active Substance: RADIATION THERAPY
     Indication: BREAST CANCER
     Dosage: 6000CGY CUMULATIVE DOSE
     Route: 061
  4. OMEPRAZOLE. [Concomitant]
     Active Substance: OMEPRAZOLE
     Dosage: 40MG PER DAY
     Route: 048
  5. GABAPENTIN. [Concomitant]
     Active Substance: GABAPENTIN
     Dosage: 800MG TWICE PER DAY
     Route: 048
  6. PHENERGAN [Concomitant]
     Active Substance: PROMETHAZINE HYDROCHLORIDE
     Indication: DYSPNOEA
     Route: 055
  7. LAPATINIB [Suspect]
     Active Substance: LAPATINIB
     Indication: BREAST CANCER
     Dosage: 750MG PER DAY
     Route: 048
     Dates: start: 20100512, end: 20110406
  8. TRASTUZUMAB [Suspect]
     Active Substance: TRASTUZUMAB
     Indication: BREAST CANCER
     Dosage: 4MGK CYCLIC
     Route: 042
     Dates: start: 20100512, end: 20110406
  9. DOCETAXEL [Suspect]
     Active Substance: DOCETAXEL
     Indication: BREAST CANCER
     Dosage: 75MGK EVERY 3 WEEKS
     Dates: start: 20100512
  10. PHENERGAN [Concomitant]
     Active Substance: PROMETHAZINE HYDROCHLORIDE
     Indication: NAUSEA
     Dosage: 25MG AS REQUIRED
     Route: 048

REACTIONS (7)
  - Nausea [Unknown]
  - Hypernatraemia [Recovered/Resolved]
  - Colitis [Not Recovered/Not Resolved]
  - Dehydration [Recovered/Resolved]
  - Lipase increased [Not Recovered/Not Resolved]
  - Abdominal pain [Recovered/Resolved]
  - Diarrhoea [Not Recovered/Not Resolved]

NARRATIVE: CASE EVENT DATE: 20110423
